FAERS Safety Report 17238002 (Version 1)
Quarter: 2020Q1

REPORT INFORMATION
  Report Type: Spontaneous
  Country: US (occurrence: US)
  Receive Date: 20200106
  Receipt Date: 20200106
  Transmission Date: 20200409
  Serious: No
  Sender: FDA-Public Use
  Company Number: US-PACIRA-201900063

PATIENT

DRUGS (5)
  1. BUPIVACAINE. [Suspect]
     Active Substance: BUPIVACAINE
     Indication: KNEE ARTHROPLASTY
     Dosage: 0.5%, 25 ML, SINGLE, FREQUENCY : SINGLE
     Route: 052
  2. KETOROLAC [Suspect]
     Active Substance: KETOROLAC TROMETHAMINE
     Indication: KNEE ARTHROPLASTY
     Dosage: 30 MG, SINGLE, FREQUENCY : SINGLE
     Route: 052
  3. BUPIVACAINE. [Suspect]
     Active Substance: BUPIVACAINE
     Indication: SPINAL ANAESTHESIA
     Dosage: 1.2 ML OF 0.75% BUPIVACAINE (9 MG), FREQUENCY : SINGLE
  4. EXPAREL [Suspect]
     Active Substance: BUPIVACAINE
     Indication: KNEE ARTHROPLASTY
     Dosage: 20 ML, SINGLE, FREQUENCY : SINGLE
     Route: 052
  5. EPINEPHRINE. [Suspect]
     Active Substance: EPINEPHRINE
     Indication: KNEE ARTHROPLASTY
     Dosage: 1 MG, SINGLE, FREQUENCY : SINGLE
     Route: 052

REACTIONS (3)
  - Pruritus [Unknown]
  - Procedural nausea [Unknown]
  - Adverse event [Unknown]
